FAERS Safety Report 6309274-3 (Version None)
Quarter: 2009Q3

REPORT INFORMATION
  Report Type: 
  Country: None (occurrence: None)
  Receive Date: 20090814
  Receipt Date: 20090807
  Transmission Date: 20100115
  Serious: Yes (Hospitalization)
  Sender: FDA-Public Use
  Company Number: GB-B.I. PHARMACEUTICALS,INC./RIDGEFIELD-2008-UK-01919UK

PATIENT
  Age: 69 Year
  Sex: Female

DRUGS (11)
  1. TIOTROPIUM (00015/0190/A) [Suspect]
     Indication: CHRONIC OBSTRUCTIVE PULMONARY DISEASE
     Dosage: 18 MCG
     Route: 055
     Dates: start: 20030801
  2. ATROVENT [Suspect]
     Dosage: FOUR TIMES DAILY
  3. SALBUTAMOL [Concomitant]
     Indication: CONDITION AGGRAVATED
     Dosage: 2 PUFFS QDS
     Route: 055
  4. PREDNISOLONE [Concomitant]
     Indication: CONDITION AGGRAVATED
     Route: 048
  5. DOMPERIDONE [Concomitant]
     Dosage: 30 MG
     Route: 048
  6. SALMETEROL [Concomitant]
     Dosage: 2 PUFFS TWICE DAILY
     Route: 055
  7. CITALOPRAM HYDROBROMIDE [Concomitant]
     Dosage: 10 MG ONCE DAILY
     Route: 048
  8. CARBOCISTEINE [Concomitant]
     Dosage: 375 X2 TDS
     Route: 048
  9. CLENIL [Concomitant]
     Dosage: 2 PUFFS BD
     Route: 055
  10. SALAMOL [Concomitant]
     Dosage: PRN
     Route: 055
  11. OMEPRAZOLE [Concomitant]
     Dosage: 20 MG BD
     Route: 048

REACTIONS (3)
  - CHRONIC OBSTRUCTIVE PULMONARY DISEASE [None]
  - CONSTIPATION [None]
  - DIZZINESS [None]
